FAERS Safety Report 8502715-2 (Version None)
Quarter: 2012Q3

REPORT INFORMATION
  Report Type: 
  Country: None (occurrence: None)
  Receive Date: 20120706
  Receipt Date: 20120706
  Transmission Date: 20120928
  Serious: Yes (Other)
  Sender: FDA-Public Use
  Company Number: None

PATIENT
  Age: 80 Year
  Sex: Female
  Weight: 68.0396 kg

DRUGS (2)
  1. VESICARE [Suspect]
     Indication: URINARY INCONTINENCE
     Dates: start: 20120420
  2. VESICARE [Suspect]
     Indication: URINARY INCONTINENCE
     Dosage: 1 - 5MG DAILY BEDTIME
     Dates: start: 20120207

REACTIONS (4)
  - RASH MACULAR [None]
  - RASH PRURITIC [None]
  - URTICARIA [None]
  - BURNING SENSATION [None]
